FAERS Safety Report 9684073 (Version 1)
Quarter: 2013Q4

REPORT INFORMATION
  Report Type: Spontaneous
  Country: US (occurrence: None)
  Receive Date: 20131111
  Receipt Date: 20131111
  Transmission Date: 20140711
  Serious: Yes (Disabling, Other)
  Sender: FDA-Public Use
  Company Number: None

PATIENT
  Age: 67 Year
  Sex: Male
  Weight: 81.65 kg

DRUGS (1)
  1. DIOVAN [Suspect]
     Indication: HYPERTENSION
     Route: 048
     Dates: start: 20131001, end: 20131101

REACTIONS (6)
  - Skin reaction [None]
  - Blister [None]
  - Rash [None]
  - Pruritus [None]
  - Thermal burn [None]
  - Product substitution issue [None]
